FAERS Safety Report 6090319-3 (Version None)
Quarter: 2009Q1

REPORT INFORMATION
  Report Type: 
  Country: None (occurrence: None)
  Receive Date: 20090224
  Receipt Date: 20081222
  Transmission Date: 20090719
  Serious: No
  Sender: FDA-Public Use
  Company Number: US-ABBOTT-08P-163-0494298-00

PATIENT
  Sex: Female

DRUGS (2)
  1. SIMCOR [Suspect]
     Indication: BLOOD CHOLESTEROL INCREASED
     Dosage: 500/20 MILLIGRAMS NIGHTLY
  2. SIMCOR [Suspect]
     Dosage: 500/20 MILLIGRAMS NIGHTLY
     Dates: start: 20081221

REACTIONS (3)
  - FLUSHING [None]
  - PAIN IN EXTREMITY [None]
  - SKIN BURNING SENSATION [None]
